FAERS Safety Report 24568049 (Version 2)
Quarter: 2024Q4

REPORT INFORMATION
  Report Type: Spontaneous
  Country: AT (occurrence: AT)
  Receive Date: 20241031
  Receipt Date: 20241128
  Transmission Date: 20250115
  Serious: Yes (Other)
  Sender: REGENERON
  Company Number: AT-BAYER-2024A137201

PATIENT
  Age: 67 Year
  Sex: Female

DRUGS (2)
  1. EYLEA HD [Suspect]
     Active Substance: AFLIBERCEPT
     Indication: Product used for unknown indication
     Dosage: 3 LEFT EYE,114.3 MG/ML; SOLUTION FOR INJECTION
     Route: 031
  2. EYLEA HD [Suspect]
     Active Substance: AFLIBERCEPT
     Dosage: 1 RIGHT EYE (PATIENT TREATED ON BOTH EYES),114.3 MG/ML; SOLUTION FOR INJECTION

REACTIONS (1)
  - Intra-ocular injection complication [Unknown]
